FAERS Safety Report 5670291-8 (Version None)
Quarter: 2008Q2

REPORT INFORMATION
  Report Type: 
  Country: None (occurrence: None)
  Receive Date: 20080229
  Receipt Date: 20070329
  Transmission Date: 20081010
  Serious: Yes (Other)
  Sender: FDA-Public Use
  Company Number: 236830

PATIENT
  Age: 15 Year
  Sex: Female
  Weight: 32.7 kg

DRUGS (7)
  1. NUTROPIN AQ [Suspect]
     Indication: GROWTH HORMONE DEFICIENCY
     Dosage: 1 MG, QD, SUBCUTANEOUS
     Route: 058
     Dates: start: 20061001
  2. EFFEXOR [Concomitant]
  3. FOCALIN [Concomitant]
  4. CARNITOR (CARNITINE) [Concomitant]
  5. CALCIUM (CALCIUM NOS) [Concomitant]
  6. MULTIVITAMIN (MULTIVITAMINS NOS) [Concomitant]
  7. COQ-10 (UBIDECARENONE) [Concomitant]

REACTIONS (1)
  - SCOLIOSIS [None]
